FAERS Safety Report 7363008 (Version 5)
Quarter: 2014Q1

REPORT INFORMATION
  Report Type: Spontaneous
  Country: US (occurrence: US)
  Receive Date: 20100422
  Receipt Date: 20140327
  Transmission Date: 20141002
  Serious: Yes (Other)
  Sender: FDA-Public Use
  Company Number: US-ASTRAZENECA-2009SE21288

PATIENT
  Age: 58 Year
  Sex: Female
  Weight: 110.2 kg

DRUGS (35)
  1. SEROQUEL [Suspect]
     Indication: DEPRESSION
     Route: 048
  2. SEROQUEL [Suspect]
     Indication: BIPOLAR DISORDER
     Route: 048
  3. SEROQUEL [Suspect]
     Indication: MENTAL DISORDER
     Route: 048
     Dates: start: 2001
  4. SEROQUEL [Suspect]
     Indication: DEPRESSION
     Route: 048
     Dates: start: 2001
  5. SEROQUEL [Suspect]
     Indication: BIPOLAR DISORDER
     Route: 048
     Dates: start: 2001
  6. SEROQUEL [Suspect]
     Indication: MENTAL DISORDER
     Route: 048
     Dates: start: 20110914
  7. SEROQUEL [Suspect]
     Indication: DEPRESSION
     Route: 048
     Dates: start: 20110914
  8. SEROQUEL [Suspect]
     Indication: BIPOLAR DISORDER
     Route: 048
     Dates: start: 20110914
  9. SEROQUEL [Suspect]
     Indication: MENTAL DISORDER
     Route: 048
  10. SEROQUEL [Suspect]
     Indication: DEPRESSION
     Route: 048
  11. SEROQUEL [Suspect]
     Indication: BIPOLAR DISORDER
     Route: 048
  12. SEROQUEL [Suspect]
     Indication: MENTAL DISORDER
     Route: 048
  13. SEROQUEL [Suspect]
     Indication: DEPRESSION
     Route: 048
  14. SEROQUEL [Suspect]
     Indication: BIPOLAR DISORDER
     Route: 048
  15. SEROQUEL [Suspect]
     Indication: MENTAL DISORDER
     Route: 048
  16. SEROQUEL [Suspect]
     Indication: DEPRESSION
     Route: 048
  17. SEROQUEL [Suspect]
     Indication: BIPOLAR DISORDER
     Route: 048
  18. BUTALBITAL [Concomitant]
     Indication: MIGRAINE
  19. LOSARTAN [Concomitant]
     Indication: BLOOD PRESSURE ABNORMAL
     Dosage: DAILY
  20. SIMVASTATIN [Concomitant]
  21. KLONIPIN [Concomitant]
  22. AMBIEN [Concomitant]
     Indication: INSOMNIA
  23. IBUPROFEN [Concomitant]
  24. WELLBUTRIN XR [Concomitant]
  25. LEVOXYL [Concomitant]
  26. NARCO [Concomitant]
  27. GABAPENTIN [Concomitant]
  28. MOBIC [Concomitant]
     Indication: NERVE COMPRESSION
  29. TOPROL XL [Suspect]
     Indication: BLOOD PRESSURE ABNORMAL
     Route: 048
  30. TOPROL XL [Suspect]
     Indication: BLOOD PRESSURE ABNORMAL
     Dosage: GENERIC
  31. TOPROL XL [Suspect]
     Indication: BLOOD PRESSURE ABNORMAL
     Route: 048
  32. SEROQUEL [Suspect]
     Indication: MENTAL DISORDER
     Route: 048
  33. SEROQUEL [Suspect]
     Indication: DEPRESSION
     Route: 048
  34. SEROQUEL [Suspect]
     Indication: BIPOLAR DISORDER
     Route: 048
  35. SEROQUEL [Suspect]
     Indication: MENTAL DISORDER
     Route: 048

REACTIONS (18)
  - Nerve compression [Unknown]
  - Fall [Unknown]
  - Ankle fracture [Unknown]
  - Foot fracture [Unknown]
  - Lower limb fracture [Unknown]
  - Malaise [Unknown]
  - Malaise [Unknown]
  - Concussion [Unknown]
  - Initial insomnia [Unknown]
  - Headache [Unknown]
  - Nervousness [Unknown]
  - Insomnia [Unknown]
  - Nightmare [Unknown]
  - Somnolence [Unknown]
  - Fatigue [Unknown]
  - Off label use [Unknown]
  - Drug ineffective for unapproved indication [Unknown]
  - Drug dose omission [Unknown]
